FAERS Safety Report 8977707 (Version 1)
Quarter: 2012Q4

REPORT INFORMATION
  Report Type: 
  Country: FR (occurrence: FR)
  Receive Date: 20121219
  Receipt Date: 20121219
  Transmission Date: 20130627
  Serious: Yes (Hospitalization)
  Sender: FDA-Public Use
  Company Number: FR-JNJFOC-20121207968

PATIENT
  Age: 47 Year
  Sex: Male
  Weight: 68 kg

DRUGS (6)
  1. ETRAVIRINE [Concomitant]
     Route: 065
     Dates: start: 20090108
  2. PREZISTA [Suspect]
     Indication: PRODUCT USED FOR UNKNOWN INDICATION
     Route: 065
     Dates: start: 20090108
  3. ENFUVIRTIDE [Suspect]
     Indication: HIV INFECTION
     Route: 058
     Dates: start: 20090108
  4. ENFUVIRTIDE [Suspect]
     Indication: HIV INFECTION
     Dosage: last dose prior to SAE
     Route: 058
     Dates: start: 20090409
  5. RITONAVIR [Concomitant]
     Route: 065
     Dates: start: 20090108
  6. RALTEGRAVIR [Concomitant]
     Route: 065
     Dates: start: 20090108

REACTIONS (1)
  - Angina unstable [Recovered/Resolved]
